FAERS Safety Report 9017210 (Version 2)
Quarter: 2013Q1

REPORT INFORMATION
  Report Type: Spontaneous
  Country: US (occurrence: US)
  Receive Date: 20130117
  Receipt Date: 20130314
  Transmission Date: 20140127
  Serious: Yes (Hospitalization)
  Sender: FDA-Public Use
  Company Number: US-GILEAD-2013-0067831

PATIENT
  Sex: Female

DRUGS (21)
  1. LETAIRIS [Suspect]
     Indication: COR PULMONALE CHRONIC
     Dosage: 2.5 MG, QD
     Route: 048
     Dates: start: 20120714
  2. RANEXA [Suspect]
     Indication: PRODUCT USED FOR UNKNOWN INDICATION
     Dosage: 500 MG, BID
     Route: 048
  3. ALAVERT [Concomitant]
  4. ALBUTEROL                          /00139501/ [Concomitant]
  5. ALLOPURINOL [Concomitant]
  6. ALPHAGAN [Concomitant]
  7. ATENOLOL [Concomitant]
  8. CALTRATE                           /00944201/ [Concomitant]
  9. FERROUS SULFATE [Concomitant]
  10. FLUOROMETHOLONE [Concomitant]
  11. FUROSEMIDE [Concomitant]
  12. LORAZEPAM [Concomitant]
  13. MECLIZINE                          /00072801/ [Concomitant]
  14. METHOCARBAMOL [Concomitant]
  15. MURO 128 [Concomitant]
  16. RANITIDINE [Concomitant]
  17. TRADJENTA [Concomitant]
  18. TYLENOL ARTHRITIS [Concomitant]
  19. VITAMIN B12                        /00056201/ [Concomitant]
  20. VOLTAREN                           /00372301/ [Concomitant]
  21. WARFARIN [Concomitant]

REACTIONS (3)
  - Syncope [Unknown]
  - Swelling [Unknown]
  - Drug hypersensitivity [Unknown]
